FAERS Safety Report 18570794 (Version 17)
Quarter: 2023Q2

REPORT INFORMATION
  Report Type: Report from Study
  Country: US (occurrence: US)
  Receive Date: 20201202
  Receipt Date: 20230510
  Transmission Date: 20230721
  Serious: Yes (Other)
  Sender: FDA-Public Use
  Company Number: US-TAKEDA-2020TUS052478

PATIENT
  Age: 75 Year
  Sex: Female
  Weight: 85 kg

DRUGS (74)
  1. HUMAN IMMUNOGLOBULIN G [Suspect]
     Active Substance: HUMAN IMMUNOGLOBULIN G
     Indication: Immunodeficiency common variable
     Dosage: 22 GRAM, Q2WEEKS
     Route: 058
     Dates: start: 20170907
  2. HUMAN IMMUNOGLOBULIN G [Suspect]
     Active Substance: HUMAN IMMUNOGLOBULIN G
     Dosage: 250 MILLIGRAM/KILOGRAM, Q2WEEKS
     Route: 058
     Dates: start: 20170914
  3. HUMAN IMMUNOGLOBULIN G [Suspect]
     Active Substance: HUMAN IMMUNOGLOBULIN G
     Dosage: 15 GRAM, Q2WEEKS
     Route: 058
     Dates: start: 20170914
  4. HUMAN IMMUNOGLOBULIN G [Suspect]
     Active Substance: HUMAN IMMUNOGLOBULIN G
     Dosage: 22 GRAM, Q2WEEKS
     Route: 058
     Dates: start: 20210130
  5. OXYCODONE [Suspect]
     Active Substance: OXYCODONE
     Indication: Product used for unknown indication
     Dosage: UNK
     Route: 065
  6. LOSARTAN POTASSIUM [Concomitant]
     Active Substance: LOSARTAN POTASSIUM
     Dosage: UNK
     Route: 065
  7. HEPATONE [Concomitant]
     Dosage: UNK
     Route: 065
  8. DICYCLOMINE HYDROCHLORIDE [Concomitant]
     Active Substance: DICYCLOMINE HYDROCHLORIDE
     Dosage: UNK
     Route: 065
  9. VITAMIN D3 [Concomitant]
     Active Substance: CHOLECALCIFEROL
     Dosage: UNK
     Route: 065
  10. VITAMIN C [Concomitant]
     Active Substance: ASCORBIC ACID
     Dosage: UNK
     Route: 065
  11. COENZYME Q10 [Concomitant]
     Active Substance: DIETARY SUPPLEMENT\UBIDECARENONE
     Dosage: UNK
     Route: 065
  12. BETAINE [Concomitant]
     Active Substance: BETAINE
     Dosage: UNK
     Route: 065
  13. BERBERINE [Concomitant]
     Active Substance: BERBERINE
     Dosage: UNK
     Route: 065
  14. ACETAMINOPHEN [Concomitant]
     Active Substance: ACETAMINOPHEN
     Dosage: UNK
     Route: 065
  15. DIPHENHYDRAMINE [Concomitant]
     Active Substance: DIPHENHYDRAMINE
     Dosage: UNK
     Route: 065
  16. LIDOCAINE [Concomitant]
     Active Substance: LIDOCAINE
     Dosage: UNK
     Route: 065
  17. EPINEPHRINE [Concomitant]
     Active Substance: EPINEPHRINE
     Dosage: UNK
     Route: 065
  18. CEPHALEXIN [Concomitant]
     Active Substance: CEPHALEXIN
     Dosage: UNK
     Route: 065
  19. NIACINAMIDE [Concomitant]
     Active Substance: NIACINAMIDE
     Dosage: UNK
     Route: 065
  20. CALCIUM PLUS D3 [Concomitant]
     Dosage: UNK
     Route: 065
  21. DEGLYCYRRHIZINISED LIQUORICE [Concomitant]
     Dosage: UNK
     Route: 065
  22. PARAFFIN [Concomitant]
     Active Substance: PARAFFIN
     Dosage: UNK
     Route: 065
  23. FERRACTIV [Concomitant]
     Dosage: UNK
     Route: 065
  24. METOPROLOL [Concomitant]
     Active Substance: METOPROLOL
     Dosage: UNK
     Route: 065
  25. LIOTHYRONINE [Concomitant]
     Active Substance: LIOTHYRONINE
     Dosage: UNK
     Route: 065
  26. UNSPECIFIED INGREDIENT [Concomitant]
     Active Substance: UNSPECIFIED INGREDIENT
     Dosage: UNK
     Route: 065
  27. XARELTO [Concomitant]
     Active Substance: RIVAROXABAN
     Dosage: UNK
     Route: 065
  28. RABEPRAZOLE [Concomitant]
     Active Substance: RABEPRAZOLE
     Dosage: UNK
     Route: 065
  29. MECLIZINE HYDROCHLORIDE [Concomitant]
     Active Substance: MECLIZINE HYDROCHLORIDE
     Dosage: UNK
     Route: 065
  30. FUROSEMIDE [Concomitant]
     Active Substance: FUROSEMIDE
     Dosage: UNK
     Route: 065
  31. SYSTANE (HYPROMELLOSE 2910 (4000 MPA.S)) [Concomitant]
     Active Substance: HYPROMELLOSE 2910 (4000 MPA.S)
     Dosage: UNK
     Route: 065
  32. TRIAMCINOLONE [Concomitant]
     Active Substance: TRIAMCINOLONE
     Dosage: UNK
     Route: 065
  33. ACETONIDE DE FLUCLOROLONE [Concomitant]
     Dosage: UNK
     Route: 065
  34. HYDROCHLOROTHIAZIDE [Concomitant]
     Active Substance: HYDROCHLOROTHIAZIDE
     Dosage: UNK
     Route: 065
  35. KLOR-CON [Concomitant]
     Active Substance: POTASSIUM CHLORIDE
     Dosage: UNK
     Route: 065
  36. DOCUSATE SODIUM [Concomitant]
     Active Substance: DOCUSATE SODIUM
     Dosage: UNK
     Route: 065
  37. ZINC [Concomitant]
     Active Substance: ZINC
     Dosage: UNK
     Route: 065
  38. MAGNESIUM [Concomitant]
     Active Substance: MAGNESIUM
     Dosage: UNK
     Route: 065
  39. HOMOCYSTEINE FORMULA [Concomitant]
     Dosage: UNK
     Route: 065
  40. GOLD BOND ORIGINAL STRENGTH POWDER [Concomitant]
     Active Substance: MENTHOL\ZINC OXIDE
     Dosage: UNK
     Route: 065
  41. ALPHA LIPOIC ACID [Concomitant]
     Active Substance: .ALPHA.-LIPOIC ACID
     Dosage: UNK
     Route: 065
  42. TIROSINT [Concomitant]
     Active Substance: LEVOTHYROXINE SODIUM
     Dosage: UNK
     Route: 065
  43. ALDARA [Concomitant]
     Active Substance: IMIQUIMOD
     Dosage: UNK
     Route: 065
  44. SYNERGY K [Concomitant]
     Dosage: UNK
     Route: 065
  45. FOLIC ACID [Concomitant]
     Active Substance: FOLIC ACID
     Dosage: UNK
     Route: 065
  46. IRON [Concomitant]
     Active Substance: IRON
     Dosage: UNK
     Route: 065
  47. MINERAL OIL [Concomitant]
     Active Substance: MINERAL OIL
     Dosage: UNK
     Route: 065
  48. HYDROCHLOROTHIAZIDE [Concomitant]
     Active Substance: HYDROCHLOROTHIAZIDE
     Dosage: UNK
     Route: 065
  49. LIOTHYRONINE SODIUM [Concomitant]
     Active Substance: LIOTHYRONINE SODIUM
  50. RABEPRAZOLE SODIUM [Concomitant]
     Active Substance: RABEPRAZOLE SODIUM
  51. CETIRIZINE HYDROCHLORIDE [Concomitant]
     Active Substance: CETIRIZINE HYDROCHLORIDE
     Dosage: UNK
     Route: 065
  52. AMLODIPINE BESYLATE [Concomitant]
     Active Substance: AMLODIPINE BESYLATE
  53. PROPAFENONE [Concomitant]
     Active Substance: PROPAFENONE
  54. POTASSIUM [Concomitant]
     Active Substance: POTASSIUM
  55. SYNERGY B [Concomitant]
  56. PREMARIN [Concomitant]
     Active Substance: ESTROGENS, CONJUGATED
  57. CETIRIZINE HCL [Concomitant]
     Active Substance: CETIRIZINE HYDROCHLORIDE
  58. Papaya enzyme [Concomitant]
  59. LEVOTHYROXINE [Concomitant]
     Active Substance: LEVOTHYROXINE
  60. MODERNA COVID-19 VACCINE [Concomitant]
     Active Substance: ELASOMERAN
  61. OMEGA-3 FISH OIL +VITAMIN D [Concomitant]
     Dosage: UNK
     Route: 065
  62. OMEGA 3 [Concomitant]
     Active Substance: CAPSAICIN
     Dosage: UNK
     Route: 065
  63. PROPAFENONE HCL [Concomitant]
     Active Substance: PROPAFENONE HYDROCHLORIDE
     Dosage: UNK
     Route: 065
  64. VITAMIN A [Concomitant]
     Active Substance: VITAMIN A
     Dosage: UNK
     Route: 065
  65. AMLODIPINE [Concomitant]
     Active Substance: AMLODIPINE BESYLATE
     Dosage: UNK
     Route: 065
  66. VITAMIN B12 [Concomitant]
     Active Substance: CYANOCOBALAMIN
     Dosage: UNK
     Route: 065
  67. Diclomine [Concomitant]
     Dosage: UNK
     Route: 065
  68. B COMPLEX PLUS VITAMIN C [Concomitant]
  69. MECLIZINE [Concomitant]
     Active Substance: MECLIZINE HYDROCHLORIDE
  70. LICORICE [Concomitant]
     Active Substance: LICORICE
  71. CALCIUM\CHOLECALCIFEROL [Concomitant]
     Active Substance: CALCIUM\CHOLECALCIFEROL
  72. CEPHALEXIN [Concomitant]
     Active Substance: CEPHALEXIN
  73. PANCREAZE [Concomitant]
     Active Substance: PANCRELIPASE AMYLASE\PANCRELIPASE LIPASE\PANCRELIPASE PROTEASE
     Dosage: UNK
  74. LOSARTAN AND HYDROCHLOROTHIAZIDE [Concomitant]
     Active Substance: HYDROCHLOROTHIAZIDE\LOSARTAN POTASSIUM
     Dosage: UNK
     Route: 065

REACTIONS (29)
  - Squamous cell carcinoma of skin [Unknown]
  - Muscle tension dysphonia [Unknown]
  - Neoplasm malignant [Unknown]
  - Basal cell carcinoma [Unknown]
  - Skin cancer [Unknown]
  - Atrial fibrillation [Unknown]
  - Vulvovaginal dryness [Unknown]
  - Blood potassium decreased [Unknown]
  - Bladder disorder [Unknown]
  - Musculoskeletal pain [Unknown]
  - Ear pain [Unknown]
  - Vulvovaginal mycotic infection [Unknown]
  - Aphonia [Unknown]
  - Irritable bowel syndrome [Not Recovered/Not Resolved]
  - Pancreatic disorder [Not Recovered/Not Resolved]
  - Gastrooesophageal reflux disease [Not Recovered/Not Resolved]
  - Thyroid disorder [Unknown]
  - Osteoarthritis [Unknown]
  - Urinary tract infection [Unknown]
  - Fungal infection [Unknown]
  - Gastrointestinal bacterial overgrowth [Unknown]
  - Hepatic lesion [Unknown]
  - Pruritus [Unknown]
  - Pain in extremity [Unknown]
  - Cough [Unknown]
  - Vertigo [Unknown]
  - Oropharyngeal pain [Unknown]
  - Eczema [Unknown]
  - Needle issue [Unknown]

NARRATIVE: CASE EVENT DATE: 20220711
